FAERS Safety Report 19488229 (Version 1)
Quarter: 2021Q3

REPORT INFORMATION
  Report Type: Spontaneous
  Country: US (occurrence: US)
  Receive Date: 20210702
  Receipt Date: 20210702
  Transmission Date: 20211014
  Serious: No
  Sender: FDA-Public Use
  Company Number: US-BIOCRYST-2021BCR00158

PATIENT
  Age: 50 Year
  Sex: Female

DRUGS (1)
  1. ORLADEYO [Suspect]
     Active Substance: BEROTRALSTAT HYDROCHLORIDE
     Indication: HEREDITARY ANGIOEDEMA
     Dosage: 110 MG
     Route: 048
     Dates: start: 20210511

REACTIONS (6)
  - Erythema [Unknown]
  - Periorbital swelling [Unknown]
  - Peripheral swelling [Unknown]
  - Photophobia [Unknown]
  - Feeling hot [Unknown]
  - Swelling face [Unknown]

NARRATIVE: CASE EVENT DATE: 20210512
